FAERS Safety Report 19946617 (Version 1)
Quarter: 2021Q4

REPORT INFORMATION
  Report Type: Report from Study
  Country: CA (occurrence: CA)
  Receive Date: 20211012
  Receipt Date: 20211012
  Transmission Date: 20220303
  Serious: Yes (Hospitalization)
  Sender: FDA-Public Use
  Company Number: CA-MYLANLABS-2021M1072076

PATIENT
  Age: 53 Year
  Sex: Male

DRUGS (9)
  1. RISPERIDONE [Suspect]
     Active Substance: RISPERIDONE
     Indication: Cognitive disorder
     Dosage: 1 MILLIGRAM, BID
     Route: 065
  2. TOLTERODINE [Suspect]
     Active Substance: TOLTERODINE
     Indication: Cognitive disorder
     Dosage: 4 MILLIGRAM, QD, AT NIGHT
     Route: 065
  3. CHLORPROMAZINE HYDROCHLORIDE [Suspect]
     Active Substance: CHLORPROMAZINE HYDROCHLORIDE
     Indication: Cognitive disorder
     Dosage: UNK, PRN  (AS NECESSARY)
     Route: 065
  4. OLANZAPINE [Suspect]
     Active Substance: OLANZAPINE
     Indication: Cognitive disorder
     Dosage: UNK, PRN  (AS NECESSARY)
     Route: 065
  5. ZOPICLONE [Suspect]
     Active Substance: ZOPICLONE
     Indication: Disinhibition
     Dosage: SLOWLY TITRATED TO 15 MG FOUR TIMES A DAY
     Route: 065
  6. ZOPICLONE [Suspect]
     Active Substance: ZOPICLONE
     Indication: Aggression
     Dosage: 15 MILLIGRAM, BID
     Route: 065
  7. ZOPICLONE [Suspect]
     Active Substance: ZOPICLONE
     Indication: Cognitive disorder
     Dosage: 7.5 MILLIGRAM, MORNING AND NOON
     Route: 065
  8. FLUVOXAMINE [Suspect]
     Active Substance: FLUVOXAMINE
     Indication: Cognitive disorder
     Dosage: 100 MILLIGRAM, QD, AT NIGHT
     Route: 065
  9. BENZTROPINE [Suspect]
     Active Substance: BENZTROPINE
     Indication: Cognitive disorder
     Dosage: UNK, PRN (AS NECESSARY)
     Route: 065

REACTIONS (2)
  - Drug ineffective [Unknown]
  - Off label use [Unknown]
